FAERS Safety Report 5114246-0 (Version None)
Quarter: 2006Q3

REPORT INFORMATION
  Report Type: 
  Country: None (occurrence: None)
  Receive Date: 20060925
  Receipt Date: 20060920
  Transmission Date: 20061208
  Serious: Yes (Other)
  Sender: FDA-Public Use
  Company Number: US-BOEHRINGER INGELHEIM PHARMACEUTICALS, INC.-2006-DE-05053GD

PATIENT
  Age: 64 Year
  Sex: Female

DRUGS (8)
  1. PRAMIPEXOLE DIHYDROCHLORIDE [Suspect]
     Indication: PARKINSON'S DISEASE
  2. PRAMIPEXOLE DIHYDROCHLORIDE [Suspect]
     Indication: DYSKINESIA
  3. AMANTADINE HCL [Suspect]
     Indication: PARKINSON'S DISEASE
  4. AMANTADINE HCL [Suspect]
     Indication: DYSKINESIA
  5. LEVODOPA [Suspect]
     Indication: PARKINSON'S DISEASE
  6. LEVODOPA [Suspect]
     Indication: DYSKINESIA
  7. ENTACAPONE [Suspect]
     Indication: PARKINSON'S DISEASE
  8. ENTACAPONE [Suspect]
     Indication: DYSKINESIA

REACTIONS (5)
  - DRUG INEFFECTIVE [None]
  - DRUG RESISTANCE [None]
  - DYSKINESIA [None]
  - HYPERVENTILATION [None]
  - RESPIRATORY DISTRESS [None]
